FAERS Safety Report 6082806-9 (Version None)
Quarter: 2009Q1

REPORT INFORMATION
  Report Type: 
  Country: None (occurrence: None)
  Receive Date: 20090202
  Receipt Date: 20070328
  Transmission Date: 20090719
  Serious: Yes (Life-Threatening)
  Sender: FDA-Public Use
  Company Number: 262247

PATIENT
  Age: 86 Year

DRUGS (18)
  1. NOVOLOG [Suspect]
     Indication: INSULIN-REQUIRING TYPE 2 DIABETES MELLITUS
     Dosage: SLIDING SCALE, SUBCUTANEOUS ; SLIDING SCALE, SUBCUTANEOUS
     Route: 058
     Dates: start: 20040101, end: 20060101
  2. NOVOLOG [Suspect]
     Indication: INSULIN-REQUIRING TYPE 2 DIABETES MELLITUS
     Dosage: SLIDING SCALE, SUBCUTANEOUS ; SLIDING SCALE, SUBCUTANEOUS
     Route: 058
     Dates: start: 20060101
  3. GLIPIZIDE [Concomitant]
  4. METFORMIN HCL [Concomitant]
  5. ACTOS /01460201/ (PIOGLITAZONE) [Concomitant]
  6. XANAX [Concomitant]
  7. PROTONIX /01263201/ (PANTOPRAZOLE) [Concomitant]
  8. LIPITOR [Concomitant]
  9. COUMADIN [Concomitant]
  10. NIFEDIPINE [Concomitant]
  11. NEFAZODONE HCL [Concomitant]
  12. KLOR-CON [Concomitant]
  13. LISINOPRIL [Concomitant]
  14. COREG [Concomitant]
  15. FUROSEMIDE [Concomitant]
  16. TRICOR [Concomitant]
  17. DIGOXIN [Concomitant]
  18. ALLOPURINOL [Concomitant]

REACTIONS (1)
  - HYPOGLYCAEMIC UNCONSCIOUSNESS [None]
